FAERS Safety Report 23588057 (Version 1)
Quarter: 2024Q1

REPORT INFORMATION
  Report Type: Spontaneous
  Country: US (occurrence: None)
  Receive Date: 20240301
  Receipt Date: 20240301
  Transmission Date: 20240409
  Serious: Yes (Other)
  Sender: FDA-Public Use
  Company Number: US-ROCHE-3518388

PATIENT
  Age: 55 Year
  Sex: Female

DRUGS (1)
  1. OCREVUS [Suspect]
     Active Substance: OCRELIZUMAB
     Indication: Multiple sclerosis
     Dosage: HAS COMPLETED FIRST TWO 1/2 DOSE INFUSIONS OF 300MG EACH
     Route: 042
     Dates: start: 20230824

REACTIONS (1)
  - Selective IgG subclass deficiency [Not Recovered/Not Resolved]
